FAERS Safety Report 8446117-6 (Version None)
Quarter: 2012Q2

REPORT INFORMATION
  Report Type: 
  Country: None (occurrence: None)
  Receive Date: 20120618
  Receipt Date: 20120608
  Transmission Date: 20120825
  Serious: Yes (Other)
  Sender: FDA-Public Use
  Company Number: AU-JNJFOC-20120518057

PATIENT
  Sex: Male

DRUGS (10)
  1. STELARA [Suspect]
     Route: 058
     Dates: start: 20111213
  2. STELARA [Suspect]
     Route: 058
     Dates: start: 20110920
  3. HUMALOG [Concomitant]
     Indication: DIABETES MELLITUS
  4. STELARA [Suspect]
     Route: 058
     Dates: start: 20101015
  5. STELARA [Suspect]
     Indication: PSORIASIS
     Route: 058
     Dates: start: 20120313
  6. STELARA [Suspect]
     Route: 058
     Dates: start: 20110106
  7. NOVORAPID [Concomitant]
     Indication: DIABETES MELLITUS
  8. STELARA [Suspect]
     Route: 058
     Dates: start: 20120605
  9. STELARA [Suspect]
     Route: 058
     Dates: start: 20110401
  10. STELARA [Suspect]
     Route: 058
     Dates: start: 20110628

REACTIONS (2)
  - PSORIASIS [None]
  - CATARACT [None]
